FAERS Safety Report 24116909 (Version 6)
Quarter: 2024Q4

REPORT INFORMATION
  Report Type: Report from Study
  Country: US (occurrence: US)
  Receive Date: 20240722
  Receipt Date: 20241213
  Transmission Date: 20250115
  Serious: Yes (Hospitalization)
  Sender: ROCHE
  Company Number: US-ROCHE-3578563

PATIENT
  Age: 70 Year
  Sex: Male
  Weight: 108.86 kg

DRUGS (1)
  1. OCREVUS [Suspect]
     Active Substance: OCRELIZUMAB
     Indication: Primary progressive multiple sclerosis
     Dosage: FIRST FULL DOSE INFUSION ADMINISTERED IN NOV-2024.?DATE OF TREATMENT: 23/JUN/2023, 07/DEC/2023, 22/D
     Route: 065
     Dates: start: 20230609

REACTIONS (7)
  - Urinary tract infection [Not Recovered/Not Resolved]
  - Cellulitis [Recovered/Resolved]
  - Skin infection [Recovered/Resolved]
  - Providencia infection [Recovered/Resolved]
  - Musculoskeletal disorder [Not Recovered/Not Resolved]
  - Proteus infection [Not Recovered/Not Resolved]
  - Multiple sclerosis pseudo relapse [Recovered/Resolved]

NARRATIVE: CASE EVENT DATE: 20240101
